FAERS Safety Report 4687246-2 (Version None)
Quarter: 2005Q2

REPORT INFORMATION
  Report Type: 
  Country: None (occurrence: None)
  Receive Date: 20050606
  Receipt Date: 20050523
  Transmission Date: 20051028
  Serious: Yes (Hospitalization)
  Sender: FDA-Public Use
  Company Number: 2005061503

PATIENT
  Age: 73 Year
  Sex: Male
  Weight: 75 kg

DRUGS (4)
  1. BEXTRA [Suspect]
     Indication: BACK PAIN
     Dosage: 20 MG (1 IN 1 D), ORAL
     Route: 048
     Dates: start: 20040923, end: 20040929
  2. TETRAZEPAM (TETRAZEPAM) [Concomitant]
  3. TRAMADOL HCL [Concomitant]
  4. DICLOFENAC SODIUM [Concomitant]

REACTIONS (10)
  - CHILLS [None]
  - DRUG ERUPTION [None]
  - DRUG HYPERSENSITIVITY [None]
  - EXANTHEM [None]
  - GENERAL PHYSICAL HEALTH DETERIORATION [None]
  - HEADACHE [None]
  - PRURITUS [None]
  - PYREXIA [None]
  - RASH MACULO-PAPULAR [None]
  - URTICARIA GENERALISED [None]
